FAERS Safety Report 8797082 (Version 1)
Quarter: 2012Q4

REPORT INFORMATION
  Report Type: 
  Country: AU (occurrence: AU)
  Receive Date: 20120919
  Receipt Date: 20120919
  Transmission Date: 20130627
  Serious: Yes (Other)
  Sender: FDA-Public Use
  Company Number: AU-GLAXOSMITHKLINE-B0827641A

PATIENT
  Age: 48 Year
  Sex: Male
  Weight: 65 kg

DRUGS (3)
  1. REVOLADE [Suspect]
     Indication: IDIOPATHIC THROMBOCYTOPENIC PURPURA
     Route: 065
  2. RAMIPRIL [Concomitant]
     Route: 065
     Dates: end: 20120831
  3. BISOPROLOL [Concomitant]
     Route: 065
     Dates: end: 20120831

REACTIONS (7)
  - Platelet count decreased [Recovered/Resolved]
  - Drug interaction [Unknown]
  - White blood cell count increased [Unknown]
  - Neutrophil count increased [Unknown]
  - Lymphocyte count increased [Unknown]
  - Monocyte count increased [Unknown]
  - Eosinophil count increased [Unknown]
